FAERS Safety Report 25292368 (Version 3)
Quarter: 2025Q3

REPORT INFORMATION
  Report Type: Spontaneous
  Country: US (occurrence: US)
  Receive Date: 20250510
  Receipt Date: 20250923
  Transmission Date: 20251021
  Serious: No
  Sender: SANOFI AVENTIS
  Company Number: US-SA-2025SA121427

PATIENT
  Age: 9 Year
  Sex: Female

DRUGS (2)
  1. DUPIXENT [Suspect]
     Active Substance: DUPILUMAB
     Indication: Eczema
     Dosage: 200 MG, QOW
     Route: 058
     Dates: start: 20250225, end: 2025
  2. DUPIXENT [Suspect]
     Active Substance: DUPILUMAB
     Indication: Dermatitis atopic
     Dosage: 200 MG, QOW
     Route: 058
     Dates: start: 20250325

REACTIONS (9)
  - Seasonal allergy [Unknown]
  - Nasal congestion [Unknown]
  - Rhinorrhoea [Unknown]
  - Sneezing [Unknown]
  - Wheezing [Unknown]
  - Condition aggravated [Unknown]
  - Skin irritation [Unknown]
  - Erythema [Unknown]
  - Incorrect dose administered [Unknown]

NARRATIVE: CASE EVENT DATE: 20250101
